FAERS Safety Report 4435922-9 (Version None)
Quarter: 2004Q3

REPORT INFORMATION
  Report Type: 
  Country: None (occurrence: None)
  Receive Date: 20040726
  Receipt Date: 20040301
  Transmission Date: 20050211
  Serious: No
  Sender: FDA-Public Use
  Company Number: USA040360565

PATIENT
  Age: 44 Year
  Sex: Female

DRUGS (5)
  1. FORTEO [Suspect]
     Indication: OSTEOPOROSIS
     Dates: start: 20040201
  2. ORTHO-NOVIN [Concomitant]
  3. ACIPHEX [Concomitant]
  4. CALCIUM [Concomitant]
  5. MULTIVITAMIN [Concomitant]

REACTIONS (4)
  - BONE PAIN [None]
  - DIZZINESS [None]
  - MUSCLE CRAMP [None]
  - PAIN IN EXTREMITY [None]
